FAERS Safety Report 7082065-4 (Version None)
Quarter: 2010Q4

REPORT INFORMATION
  Report Type: 
  Country: None (occurrence: None)
  Receive Date: 20101103
  Receipt Date: 20101027
  Transmission Date: 20110411
  Serious: No
  Sender: FDA-Public Use
  Company Number: US-PFIZER INC-2010137285

PATIENT
  Sex: Female
  Weight: 48.98 kg

DRUGS (2)
  1. AZITHROMYCIN [Suspect]
     Indication: SINUSITIS
     Dosage: 250 MG, UNK
  2. AZITHROMYCIN [Suspect]
     Indication: RESPIRATORY TRACT INFECTION

REACTIONS (2)
  - DRUG INEFFECTIVE [None]
  - PRODUCT SUBSTITUTION ISSUE [None]
